FAERS Safety Report 6630272-4 (Version None)
Quarter: 2010Q1

REPORT INFORMATION
  Report Type: 
  Country: None (occurrence: None)
  Receive Date: 20100311
  Receipt Date: 20100304
  Transmission Date: 20100710
  Serious: Yes (Other)
  Sender: FDA-Public Use
  Company Number: B0639069A

PATIENT
  Sex: Female

DRUGS (1)
  1. SALBUTAMOL [Suspect]
     Indication: ASTHMA
     Dosage: 100MCG SINGLE DOSE
     Route: 055
     Dates: start: 20100116, end: 20100116

REACTIONS (2)
  - NAUSEA [None]
  - PRODUCT TASTE ABNORMAL [None]
